FAERS Safety Report 24078710 (Version 1)
Quarter: 2024Q3

REPORT INFORMATION
  Report Type: Spontaneous
  Country: JP (occurrence: JP)
  Receive Date: 20240711
  Receipt Date: 20240711
  Transmission Date: 20241016
  Serious: Yes (Life-Threatening, Hospitalization)
  Sender: ACCORD
  Company Number: JP-MLMSERVICE-20240624-PI110789-00033-1

PATIENT
  Age: 63 Year
  Sex: Male

DRUGS (4)
  1. PRASUGREL HYDROCHLORIDE [Suspect]
     Active Substance: PRASUGREL HYDROCHLORIDE
     Indication: Antiplatelet therapy
  2. ASPIRIN [Suspect]
     Active Substance: ASPIRIN
     Indication: Antiplatelet therapy
  3. HEPARIN [Suspect]
     Active Substance: HEPARIN SODIUM
     Indication: Anticoagulant therapy
     Dosage: FOLLOWING TAE, AN IABP WAS REINSERTED, AND HEPARIN WAS ADMINISTERED
  4. HEPARIN [Suspect]
     Active Substance: HEPARIN SODIUM
     Indication: Anticoagulant therapy

REACTIONS (5)
  - Chest wall haematoma [Recovered/Resolved]
  - Infusion site extravasation [Recovered/Resolved]
  - Atelectasis [Unknown]
  - Shock [Recovered/Resolved]
  - Arterial haemorrhage [Recovered/Resolved]
